FAERS Safety Report 9372531 (Version 1)
Quarter: 2013Q2

REPORT INFORMATION
  Report Type: Spontaneous
  Country: US (occurrence: None)
  Receive Date: 20130607
  Receipt Date: 20130607
  Transmission Date: 20140414
  Serious: Yes (Hospitalization)
  Sender: FDA-Public Use
  Company Number: 2013036382

PATIENT
  Age: 23 Year
  Sex: Female
  Weight: 83.01 kg

DRUGS (11)
  1. HIZENTRA (IMMUNOGLOBULIN HUMAN NORMAL) [Suspect]
     Indication: IMMUNODEFICIENCY COMMON VARIABLE
     Dosage: 2 GM OVER 1-2 HOURS USING PUMP SUBCUTANEOUS
     Route: 058
  2. HIZENTRA (IMMUNOGLOBULIN HUMAN NORMAL) [Suspect]
     Indication: AGRANULOCYTOSIS
     Dosage: 2 GM OVER 1-2 HOURS USING PUMP SUBCUTANEOUS
     Route: 058
  3. DIPHENYDRAMINE (DIPHENHYDRAMINE) [Concomitant]
  4. LIDOCAINE 4% (LIDOCAINE) [Concomitant]
  5. EPIPEN (EPINEPHRINE) [Concomitant]
  6. ROBITUSSIN (GUAIFENESIN) [Concomitant]
  7. PREDNISONE (PREDNISONE) [Concomitant]
  8. ALBUTEROL (SALBUTAMOL) [Concomitant]
  9. ZOLOFT (SERTRALINE) [Concomitant]
  10. ITRACONAZOLE (ITRACONAZOL) [Concomitant]
  11. NEUPROGEN (FILGRASTIM) [Concomitant]

REACTIONS (3)
  - Off label use [None]
  - Abortion spontaneous [None]
  - Exposure during pregnancy [None]
